FAERS Safety Report 24556982 (Version 1)
Quarter: 2024Q4

REPORT INFORMATION
  Report Type: Spontaneous
  Country: US (occurrence: US)
  Receive Date: 20241028
  Receipt Date: 20241028
  Transmission Date: 20250115
  Serious: No
  Sender: PHARMALEX US CORPORATION
  Company Number: US-PharmaLex US Corporation-2163948

PATIENT
  Age: 20 Year
  Sex: Male
  Weight: 59 kg

DRUGS (1)
  1. CYTALUX [Suspect]
     Active Substance: PAFOLACIANINE SODIUM
     Indication: Lung neoplasm malignant
     Dates: start: 20241017, end: 20241017

REACTIONS (1)
  - Nausea [Unknown]
